FAERS Safety Report 6550538-6 (Version None)
Quarter: 2010Q1

REPORT INFORMATION
  Report Type: 
  Country: None (occurrence: None)
  Receive Date: 20100125
  Receipt Date: 20071023
  Transmission Date: 20100710
  Serious: Yes (Hospitalization)
  Sender: FDA-Public Use
  Company Number: B0628501A

PATIENT
  Sex: Male

DRUGS (7)
  1. LANOXIN [Suspect]
     Indication: ATRIAL FIBRILLATION
     Dosage: 4UNIT PER DAY
     Route: 048
     Dates: start: 20070613, end: 20070706
  2. BISOPROLOL FUMARATE [Suspect]
     Indication: HYPERTENSION
     Dosage: 1UNIT PER DAY
     Route: 048
     Dates: start: 20070613, end: 20070706
  3. CARVEDILOL [Concomitant]
     Dosage: 25MG PER DAY
  4. TRIATEC [Concomitant]
     Dosage: 1UNIT PER DAY
     Route: 048
  5. TAPAZOLE [Concomitant]
     Dosage: 1UNIT PER DAY
     Route: 048
  6. COUMADIN [Concomitant]
  7. LASITONE [Concomitant]
     Dosage: 1UNIT PER DAY
     Route: 048

REACTIONS (3)
  - BRADYCARDIA [None]
  - DISORIENTATION [None]
  - FALL [None]
